FAERS Safety Report 18915867 (Version 1)
Quarter: 2021Q1

REPORT INFORMATION
  Report Type: Spontaneous
  Country: US (occurrence: US)
  Receive Date: 20210219
  Receipt Date: 20210219
  Transmission Date: 20210420
  Serious: No
  Sender: FDA-Public Use
  Company Number: US-TEVA-2021-US-1881343

PATIENT
  Sex: Female

DRUGS (1)
  1. TREPROSTINIL MDV TEVA [Suspect]
     Active Substance: TREPROSTINIL
     Indication: PULMONARY ARTERIAL HYPERTENSION
     Dosage: DOSE: 19NG/KG/MIN
     Route: 042
     Dates: start: 20201209

REACTIONS (7)
  - Illness [Unknown]
  - Nasal congestion [Unknown]
  - Dizziness [Unknown]
  - Cough [Unknown]
  - Fatigue [Unknown]
  - Influenza [Unknown]
  - Rhinorrhoea [Unknown]
